FAERS Safety Report 14371980 (Version 2)
Quarter: 2018Q1

REPORT INFORMATION
  Report Type: Report from Study
  Country: US (occurrence: US)
  Receive Date: 20180110
  Receipt Date: 20180123
  Transmission Date: 20180509
  Serious: Yes (Hospitalization, Other)
  Sender: FDA-Public Use
  Company Number: US-ASTELLAS-2017US054146

PATIENT
  Age: 86 Year
  Sex: Male

DRUGS (2)
  1. ERLOTINIB [Suspect]
     Active Substance: ERLOTINIB
     Indication: NON-SMALL CELL LUNG CANCER STAGE IV
     Route: 048
     Dates: start: 201710
  2. ERLOTINIB [Suspect]
     Active Substance: ERLOTINIB
     Indication: BRONCHIAL CARCINOMA

REACTIONS (8)
  - Thrombosis [Unknown]
  - Aphthous ulcer [Not Recovered/Not Resolved]
  - Dehydration [Unknown]
  - Neoplasm [Not Recovered/Not Resolved]
  - Fungal infection [Not Recovered/Not Resolved]
  - Staphylococcal infection [Unknown]
  - Oedema [Recovering/Resolving]
  - Malaise [Unknown]

NARRATIVE: CASE EVENT DATE: 201711
